FAERS Safety Report 9779790 (Version 1)
Quarter: 2013Q4

REPORT INFORMATION
  Report Type: Spontaneous
  Country: JP (occurrence: JP)
  Receive Date: 20131223
  Receipt Date: 20131223
  Transmission Date: 20140711
  Serious: Yes (Death, Hospitalization)
  Sender: FDA-Public Use
  Company Number: JP-GLAXOSMITHKLINE-B0948490A

PATIENT
  Age: 88 Year
  Sex: Male
  Weight: 46 kg

DRUGS (17)
  1. PAXIL [Suspect]
     Indication: DEPRESSIVE SYMPTOM
     Dosage: 12.5MG PER DAY
     Route: 048
     Dates: start: 20130925, end: 20130929
  2. DEPAS [Concomitant]
     Indication: ANXIETY DISORDER
     Dosage: .5MG PER DAY
     Route: 048
     Dates: start: 20121003, end: 20130130
  3. MICARDIS [Concomitant]
     Indication: HYPERTENSION
     Dosage: 40MG PER DAY
     Route: 048
     Dates: start: 20121003, end: 20121107
  4. MICARDIS [Concomitant]
     Indication: HYPERTENSION
     Dosage: 40MG PER DAY
     Route: 048
     Dates: start: 20130206, end: 20130911
  5. DIART [Concomitant]
     Indication: CARDIAC FAILURE CHRONIC
     Dosage: 30MG PER DAY
     Route: 048
     Dates: start: 20121003, end: 20121107
  6. DIART [Concomitant]
     Indication: CARDIAC FAILURE CHRONIC
     Dosage: 60MG PER DAY
     Route: 048
     Dates: start: 20130828, end: 20131128
  7. EDIROL [Concomitant]
     Indication: OSTEOPOROSIS
     Dosage: .75MCG PER DAY
     Route: 048
     Dates: start: 20121003, end: 20121107
  8. MIYA BM [Concomitant]
     Indication: ENTEROCOLITIS
     Dosage: 60MG THREE TIMES PER DAY
     Route: 048
     Dates: start: 20121003, end: 20131128
  9. SLOW-K [Concomitant]
     Indication: HYPOKALAEMIA
     Dosage: 600MG PER DAY
     Route: 048
     Dates: start: 20121003, end: 20121010
  10. AMLODIPINE [Concomitant]
     Indication: HYPERTENSION
     Dosage: 2.5MG PER DAY
     Route: 048
     Dates: start: 20121107, end: 20130116
  11. FUROSEMIDE [Concomitant]
     Indication: HYPERTENSION
     Dosage: 80MG TWICE PER DAY
     Route: 048
     Dates: start: 20121107, end: 20130828
  12. PIROLACTON [Concomitant]
     Indication: OEDEMA DUE TO CARDIAC DISEASE
     Dosage: 25MG PER DAY
     Route: 048
     Dates: start: 20121121, end: 20130116
  13. MUCODYNE [Concomitant]
     Indication: BRONCHITIS CHRONIC
     Dosage: 750MG THREE TIMES PER DAY
     Route: 048
     Dates: start: 20130227, end: 20130327
  14. RABEPRAZOLE [Concomitant]
     Indication: GASTROOESOPHAGEAL REFLUX DISEASE
     Dosage: 10MG PER DAY
     Route: 048
     Dates: start: 20130814, end: 20130925
  15. GASMOTIN [Concomitant]
     Indication: GASTRITIS
     Dosage: 15MG THREE TIMES PER DAY
     Route: 048
     Dates: start: 20130814, end: 20130911
  16. DOGMATYL [Concomitant]
     Indication: DEPRESSIVE SYMPTOM
     Dosage: 100MG TWICE PER DAY
     Route: 048
     Dates: start: 20130911, end: 20130925
  17. PROMAC [Concomitant]
     Indication: GASTRIC ULCER
     Dosage: 150MG TWICE PER DAY
     Route: 048
     Dates: start: 20130925, end: 20131128

REACTIONS (10)
  - Cardiac failure chronic [Fatal]
  - Cardiac arrest [Fatal]
  - Somnolence [Recovered/Resolved]
  - Blunted affect [Recovered/Resolved]
  - Pleural effusion [Unknown]
  - Cardiomegaly [Unknown]
  - Chest discomfort [Unknown]
  - Hypoaesthesia [Recovered/Resolved]
  - Decreased activity [Recovered/Resolved]
  - Bradyphrenia [Recovered/Resolved]
